FAERS Safety Report 25498213 (Version 1)
Quarter: 2025Q3

REPORT INFORMATION
  Report Type: Spontaneous
  Country: US (occurrence: US)
  Receive Date: 20250701
  Receipt Date: 20250701
  Transmission Date: 20251020
  Serious: Yes (Other)
  Sender: SANOFI AVENTIS
  Company Number: US-SA-2025SA182277

PATIENT
  Sex: Female

DRUGS (3)
  1. OXALIPLATIN [Suspect]
     Active Substance: OXALIPLATIN
     Indication: Small intestine adenocarcinoma
     Dates: start: 20250521
  2. BRAFTOVI [Suspect]
     Active Substance: ENCORAFENIB
     Indication: Small intestine adenocarcinoma
     Dosage: 300 MG , QD
     Route: 048
     Dates: start: 20250521
  3. VECTIBIX [Concomitant]
     Active Substance: PANITUMUMAB
     Indication: Small intestine adenocarcinoma
     Dosage: 300 MG, QD
     Dates: start: 20250521

REACTIONS (14)
  - Pulmonary oedema [Unknown]
  - Hypokalaemia [Recovered/Resolved]
  - Purpura [Unknown]
  - Skin hyperpigmentation [Unknown]
  - Nail discolouration [Unknown]
  - Gastrooesophageal reflux disease [Unknown]
  - Pain [Recovering/Resolving]
  - Condition aggravated [Not Recovered/Not Resolved]
  - Fatigue [Unknown]
  - Decreased appetite [Unknown]
  - Tachycardia [Unknown]
  - White blood cell count decreased [Recovered/Resolved]
  - Candida infection [Unknown]
  - Pyrexia [Recovered/Resolved]

NARRATIVE: CASE EVENT DATE: 20250101
